FAERS Safety Report 18324773 (Version 4)
Quarter: 2021Q3

REPORT INFORMATION
  Report Type: Spontaneous
  Country: US (occurrence: US)
  Receive Date: 20200929
  Receipt Date: 20210811
  Transmission Date: 20211014
  Serious: Yes (Hospitalization, Other)
  Sender: FDA-Public Use
  Company Number: US-SA-2020SA254743

PATIENT
  Age: 63 Year
  Sex: Male

DRUGS (34)
  1. LOPRESSOR [Concomitant]
     Active Substance: METOPROLOL TARTRATE
     Dosage: 25 MG, BID
     Dates: start: 20170718, end: 20170731
  2. COZAAR [Concomitant]
     Active Substance: LOSARTAN POTASSIUM
     Dosage: 50 MG, QD
     Dates: start: 20170720, end: 20170731
  3. ENOXAPARIN SODIUM. [Concomitant]
     Active Substance: ENOXAPARIN SODIUM
     Dosage: 4 MG, Q12H
     Route: 058
     Dates: start: 20170727, end: 20170731
  4. ATROPINE SULPHATE [Concomitant]
     Active Substance: ATROPINE SULFATE
     Dosage: 0.3 MG, PRN
     Dates: start: 20170726, end: 20170726
  5. COUMADIN [Concomitant]
     Active Substance: WARFARIN SODIUM
     Dosage: 2.5 MG, QD
     Route: 048
     Dates: start: 20170727, end: 20170730
  6. TYLENOL [Concomitant]
     Active Substance: ACETAMINOPHEN
     Indication: PAIN
     Dosage: 1000 MG, TID
     Dates: start: 20170716, end: 20170721
  7. NEURONTIN [Concomitant]
     Active Substance: GABAPENTIN
     Dosage: 200 MG, TID
     Dates: start: 20170720, end: 20170731
  8. BUPIVACAINE. [Concomitant]
     Active Substance: BUPIVACAINE
     Dosage: 30 ML
     Dates: start: 20170726, end: 20170726
  9. DIPHENHYDRAMINE HCL [Concomitant]
     Active Substance: DIPHENHYDRAMINE HYDROCHLORIDE
     Dosage: UNK UNK, Q6H
     Route: 048
     Dates: start: 20170716, end: 20170731
  10. NICOTINE. [Concomitant]
     Active Substance: NICOTINE
     Dosage: 1 UNK, QD
     Dates: start: 20170717, end: 20170731
  11. HYDROMORPHONE [Concomitant]
     Active Substance: HYDROMORPHONE
     Indication: PAIN
     Dosage: 0.5 MG, PRN
     Dates: start: 20170727, end: 20170728
  12. TRIAMCINOLONE ACETONIDE. [Concomitant]
     Active Substance: TRIAMCINOLONE ACETONIDE
     Dosage: 15 MG, BID
  13. SENOKOT [Concomitant]
     Active Substance: SENNOSIDES
     Indication: CONSTIPATION
     Dosage: 1 DF, BID
  14. COLACE [Concomitant]
     Active Substance: DOCUSATE SODIUM
     Dosage: 100 MG, BID
  15. MAGNESIUM HYDROXIDE. [Concomitant]
     Active Substance: MAGNESIUM HYDROXIDE
     Indication: DYSPEPSIA
     Dosage: 60 ML
     Dates: start: 20170718, end: 20170731
  16. METOPROLOL TARTRATE. [Concomitant]
     Active Substance: METOPROLOL TARTRATE
     Dosage: 25 MG, BID
     Route: 048
     Dates: start: 20210718, end: 20210731
  17. MORPHINE SULPHATE [Concomitant]
     Active Substance: MORPHINE SULFATE
     Indication: DYSPNOEA
     Dosage: 0.5 MG, PRN
  18. FAMOTIDINE. [Concomitant]
     Active Substance: FAMOTIDINE
     Dosage: 20 MG
     Dates: start: 20170726, end: 20170726
  19. ZANTAC [Suspect]
     Active Substance: RANITIDINE HYDROCHLORIDE
     Dosage: UNK
     Route: 048
     Dates: start: 201205, end: 201709
  20. LIPITOR [Concomitant]
     Active Substance: ATORVASTATIN CALCIUM
     Dosage: 20 MG, QD
     Route: 048
     Dates: start: 20210718, end: 20210731
  21. NORCO [Concomitant]
     Active Substance: ACETAMINOPHEN\HYDROCODONE BITARTRATE
     Indication: PAIN
     Dosage: UNK
  22. POTASSIUM BICARBONATE. [Concomitant]
     Active Substance: POTASSIUM BICARBONATE
     Indication: HYPOKALAEMIA
     Dosage: UNK UNK, PRN
     Dates: start: 20210716, end: 20210731
  23. IPRATROPIUM [Concomitant]
     Active Substance: IPRATROPIUM
     Indication: WHEEZING
     Dosage: 3 ML, PRN
  24. SODIUM CHLORIDE. [Concomitant]
     Active Substance: SODIUM CHLORIDE
     Dosage: 10 ML, PRN
     Dates: start: 20170716, end: 20170731
  25. PERCOCET [Concomitant]
     Active Substance: ACETAMINOPHEN\OXYCODONE HYDROCHLORIDE
     Indication: PAIN
     Dosage: UNK
     Dates: start: 20170722, end: 20170731
  26. POTASSIUM CHLORIDE. [Concomitant]
     Active Substance: POTASSIUM CHLORIDE
     Dosage: 20 MG
     Dates: start: 20170716, end: 20170731
  27. MORPHINE SULPHATE [Concomitant]
     Active Substance: MORPHINE SULFATE
     Indication: PAIN
     Dosage: 2 MG, PRN
     Dates: start: 20170726, end: 20170731
  28. MAGNESIUM SULPHATE [MAGNESIUM SULFATE] [Concomitant]
     Active Substance: MAGNESIUM SULFATE
     Dosage: 50 ML, PRN
     Route: 048
     Dates: start: 20170716, end: 20170731
  29. ATROPINE. [Concomitant]
     Active Substance: ATROPINE
     Dosage: UNK
  30. DIPHENHYDRAMINE. [Concomitant]
     Active Substance: DIPHENHYDRAMINE
     Dosage: 50 MG/ML, PRN
     Dates: start: 20170726
  31. CEPHAZOLIN [CEFAZOLIN] [Concomitant]
     Active Substance: CEFAZOLIN
     Dosage: UNK
     Dates: start: 20170726, end: 20170726
  32. CLONIDINE HCL [Concomitant]
     Active Substance: CLONIDINE HYDROCHLORIDE
     Dosage: 0.1 MG, Q4H
     Route: 048
     Dates: start: 20210716, end: 20210731
  33. EPHEDRINE SULFATE. [Concomitant]
     Active Substance: EPHEDRINE SULFATE
     Indication: HYPOTENSION
     Dosage: 10 MG, PRN
     Dates: start: 20170726
  34. CEFTRIAXONE. [Concomitant]
     Active Substance: CEFTRIAXONE
     Dosage: UNK
     Dates: start: 20170716, end: 20170724

REACTIONS (19)
  - Deep vein thrombosis [Unknown]
  - Muscular weakness [Unknown]
  - Blood loss anaemia [Recovered/Resolved]
  - Haematuria [Recovered/Resolved]
  - Bronchitis chronic [Unknown]
  - Hospitalisation [Unknown]
  - Vomiting [Unknown]
  - Hyponatraemia [Recovered/Resolved]
  - Back pain [Unknown]
  - Renal cancer [Unknown]
  - Bladder cancer [Unknown]
  - Anxiety [Unknown]
  - Nausea [Unknown]
  - Injury [Unknown]
  - Nicotine dependence [Unknown]
  - Asthenia [Unknown]
  - Troponin increased [Recovered/Resolved]
  - Acute kidney injury [Recovered/Resolved]
  - Nephrectomy [Unknown]

NARRATIVE: CASE EVENT DATE: 2017
